FAERS Safety Report 18630237 (Version 1)
Quarter: 2020Q4

REPORT INFORMATION
  Report Type: Spontaneous
  Country: US (occurrence: US)
  Receive Date: 20201218
  Receipt Date: 20201218
  Transmission Date: 20210114
  Serious: No
  Sender: FDA-Public Use
  Company Number: US-LUPIN PHARMACEUTICALS INC.-2020-10165

PATIENT
  Age: 61 Year

DRUGS (8)
  1. MENTHOL. [Suspect]
     Active Substance: MENTHOL
     Indication: NEURODERMATITIS
     Dosage: UNK (MENTHOL 2% WITH LUBRIDERM)
     Route: 065
  2. BUTORPHANOL [Concomitant]
     Active Substance: BUTORPHANOL
     Indication: NEURODERMATITIS
     Dosage: 10 MILLIGRAM PER MILLILITRE, PRN (FOR UPTO 4 HRS)
     Route: 045
  3. PREGABALIN. [Suspect]
     Active Substance: PREGABALIN
     Indication: NEURODERMATITIS
     Dosage: UNK
     Route: 065
  4. DIPHENHYDRAMINE. [Suspect]
     Active Substance: DIPHENHYDRAMINE
     Indication: NEURODERMATITIS
     Dosage: UNK
     Route: 065
  5. TRIAMCINOLONE [Suspect]
     Active Substance: TRIAMCINOLONE
     Indication: NEURODERMATITIS
     Dosage: UNK
     Route: 065
  6. APREPITANT. [Suspect]
     Active Substance: APREPITANT
     Indication: NEURODERMATITIS
     Dosage: UNK
     Route: 065
  7. HYDROXYZINE [Suspect]
     Active Substance: HYDROXYZINE HYDROCHLORIDE
     Indication: NEURODERMATITIS
     Dosage: UNK
     Route: 065
  8. MIRTAZAPINE. [Suspect]
     Active Substance: MIRTAZAPINE
     Indication: NEURODERMATITIS
     Dosage: UNK
     Route: 065

REACTIONS (1)
  - Treatment failure [Unknown]
